FAERS Safety Report 6305196-2 (Version None)
Quarter: 2009Q3

REPORT INFORMATION
  Report Type: 
  Country: None (occurrence: None)
  Receive Date: 20090811
  Receipt Date: 20090801
  Transmission Date: 20100115
  Serious: Yes (Other)
  Sender: FDA-Public Use
  Company Number: JP-SANOFI-SYNTHELABO-A01200907360

PATIENT
  Age: 55 Year
  Sex: Male

DRUGS (3)
  1. BASEN [Concomitant]
     Indication: DRUG USE FOR UNKNOWN INDICATION
     Dosage: UNK
     Route: 048
  2. GASTER [Suspect]
     Indication: GASTRITIS
     Route: 048
     Dates: start: 20070711
  3. MYSLEE [Suspect]
     Indication: INSOMNIA
     Route: 048
     Dates: start: 20090618

REACTIONS (3)
  - HYPOGLYCAEMIA [None]
  - PSYCHIATRIC SYMPTOM [None]
  - ROAD TRAFFIC ACCIDENT [None]
